FAERS Safety Report 16987016 (Version 5)
Quarter: 2020Q2

REPORT INFORMATION
  Report Type: Report from Study
  Country: None (occurrence: CO)
  Receive Date: 20191102
  Receipt Date: 20200406
  Transmission Date: 20200713
  Serious: Yes (Other)
  Sender: FDA-Public Use
  Company Number: CO-ABBVIE-19K-036-2989158-00

PATIENT
  Age: 51 Year
  Sex: Female
  Weight: 57 kg

DRUGS (2)
  1. HUMIRA [Suspect]
     Active Substance: ADALIMUMAB
     Indication: RHEUMATOID ARTHRITIS
     Route: 058
     Dates: start: 20140414
  2. HUMIRA [Suspect]
     Active Substance: ADALIMUMAB
     Indication: RHEUMATOID ARTHRITIS
     Dosage: HUMIRA AC
     Route: 058

REACTIONS (19)
  - Proteinuria [Recovering/Resolving]
  - Inflammation [Not Recovered/Not Resolved]
  - Paraesthesia [Unknown]
  - Joint swelling [Unknown]
  - Psychiatric symptom [Recovering/Resolving]
  - Muscle atrophy [Not Recovered/Not Resolved]
  - Insomnia [Recovering/Resolving]
  - Headache [Recovering/Resolving]
  - Peripheral swelling [Unknown]
  - Somnolence [Recovering/Resolving]
  - Amnesia [Unknown]
  - Arthralgia [Not Recovered/Not Resolved]
  - Fibromyalgia [Recovering/Resolving]
  - Weight decreased [Recovering/Resolving]
  - Syncope [Not Recovered/Not Resolved]
  - Arthralgia [Recovering/Resolving]
  - Musculoskeletal pain [Not Recovered/Not Resolved]
  - Pain in extremity [Not Recovered/Not Resolved]
  - Feeling hot [Unknown]

NARRATIVE: CASE EVENT DATE: 2017
